FAERS Safety Report 22004198 (Version 2)
Quarter: 2023Q1

REPORT INFORMATION
  Report Type: Spontaneous
  Country: FR (occurrence: FR)
  Receive Date: 20230217
  Receipt Date: 20230227
  Transmission Date: 20230418
  Serious: Yes (Hospitalization, Other)
  Sender: FDA-Public Use
  Company Number: FR-MLMSERVICE-20230208-4091056-1

PATIENT
  Age: 76 Year
  Sex: Female

DRUGS (15)
  1. BROMAZEPAM [Suspect]
     Active Substance: BROMAZEPAM
     Dosage: UNK
  2. ZOLPIDEM TARTRATE [Suspect]
     Active Substance: ZOLPIDEM TARTRATE
     Dosage: UNK
  3. TRAMADOL HYDROCHLORIDE [Suspect]
     Active Substance: TRAMADOL HYDROCHLORIDE
     Dosage: UNK
  4. TIANEPTINE [Suspect]
     Active Substance: TIANEPTINE
     Dosage: UNK
  5. MILNACIPRAN [Suspect]
     Active Substance: MILNACIPRAN
     Dosage: UNK
  6. FLECAINIDE [Concomitant]
     Active Substance: FLECAINIDE
     Dosage: UNK
  7. CEFTRIAXONE [Concomitant]
     Active Substance: CEFTRIAXONE
     Dosage: UNK
  8. CODEINE [Concomitant]
     Active Substance: CODEINE
     Dosage: UNK
  9. NOSCAPINE [Concomitant]
     Active Substance: NOSCAPINE
     Dosage: UNK
  10. ALPRAZOLAM [Concomitant]
     Active Substance: ALPRAZOLAM
     Dosage: UNK
  11. ACETAMINOPHEN [Concomitant]
     Active Substance: ACETAMINOPHEN
     Dosage: UNK
  12. VERAPAMIL [Concomitant]
     Active Substance: VERAPAMIL HYDROCHLORIDE
     Dosage: UNK
  13. MORPHINE [Concomitant]
     Active Substance: MORPHINE
     Dosage: UNK
  14. FLUOXETINE [Concomitant]
     Active Substance: FLUOXETINE HYDROCHLORIDE
     Dosage: UNK
  15. OMEPRAZOLE [Concomitant]
     Active Substance: OMEPRAZOLE
     Dosage: UNK

REACTIONS (7)
  - Coma [Unknown]
  - Toxicity to various agents [Unknown]
  - Hypoglycaemia [Unknown]
  - Hypokalaemia [Unknown]
  - Disturbance in attention [Unknown]
  - Transaminases increased [Unknown]
  - Poisoning deliberate [Unknown]
